FAERS Safety Report 6529126-3 (Version None)
Quarter: 2009Q4

REPORT INFORMATION
  Report Type: 
  Country: None (occurrence: None)
  Receive Date: 20091224
  Receipt Date: 20091221
  Transmission Date: 20100525
  Serious: Yes (Life-Threatening, Hospitalization)
  Sender: FDA-Public Use
  Company Number: DE-1180005

PATIENT
  Age: 72 Year
  Sex: Male

DRUGS (6)
  1. FLUORESCITE [Suspect]
     Indication: VENOUS OCCLUSION
     Dosage: 4 ML INTRAVENOUS BOLUS
     Route: 040
  2. HYDROCHLOROTHIAZIDE [Concomitant]
  3. DOXAZOSIN (DOXAZOSIN MESILATE) [Concomitant]
  4. ENALAPRIL MALEATE [Concomitant]
  5. METFORMIN HCL [Concomitant]
  6. CORIFEO (LERCANIDIPINE HYDROCHLORIDE) [Concomitant]

REACTIONS (2)
  - ATRIOVENTRICULAR BLOCK FIRST DEGREE [None]
  - MYOCARDIAL INFARCTION [None]
